FAERS Safety Report 9542626 (Version 1)
Quarter: 2013Q3

REPORT INFORMATION
  Report Type: Spontaneous
  Country: US (occurrence: US)
  Receive Date: 20130923
  Receipt Date: 20130923
  Transmission Date: 20140515
  Serious: Yes (Other)
  Sender: FDA-Public Use
  Company Number: US-PFIZER INC-2013271326

PATIENT
  Age: 74 Year
  Sex: Female
  Weight: 55.78 kg

DRUGS (15)
  1. LYRICA [Suspect]
     Indication: OSTEOPOROSIS
     Dosage: 50 MG, 1X/DAY
     Dates: start: 20130912
  2. LYRICA [Interacting]
     Indication: INTERVERTEBRAL DISC DEGENERATION
  3. LYRICA [Interacting]
     Indication: SPINAL COLUMN STENOSIS
  4. BUDESONIDE [Interacting]
     Indication: EMPHYSEMA
     Dosage: UNK
  5. IBUPROFEN [Interacting]
     Indication: BONE PAIN
     Dosage: UNK
  6. OMEPRAZOLE [Interacting]
     Indication: ABDOMINAL DISCOMFORT
     Dosage: 40 MG, 1X/DAY
  7. OMEPRAZOLE [Interacting]
     Indication: GASTROOESOPHAGEAL REFLUX DISEASE
  8. INDERAL [Interacting]
     Indication: MITRAL VALVE PROLAPSE
     Dosage: 20 MG, 2X/DAY
  9. SIMVASTATIN [Interacting]
     Indication: BLOOD CHOLESTEROL INCREASED
     Dosage: 40 MG, 1X/DAY
  10. ALBUTEROL [Interacting]
     Indication: EMPHYSEMA
     Dosage: UNK, 4X/DAY
  11. TORADOL [Interacting]
     Indication: BONE PAIN
     Dosage: UNK
  12. VICODIN [Interacting]
     Indication: BONE PAIN
     Dosage: UNK
  13. VITAMIN D3 [Interacting]
     Indication: OSTEOPOROSIS
     Dosage: 2000 IU, 1X/DAY
  14. PROBIOTICS [Interacting]
     Indication: CONSTIPATION
     Dosage: UNK
  15. PROBIOTICS [Interacting]
     Indication: DYSPEPSIA

REACTIONS (5)
  - Off label use [Unknown]
  - Drug interaction [Unknown]
  - Dyspnoea [Not Recovered/Not Resolved]
  - Respiratory tract congestion [Not Recovered/Not Resolved]
  - Drug ineffective [Unknown]
